FAERS Safety Report 7300771-0 (Version None)
Quarter: 2011Q1

REPORT INFORMATION
  Report Type: 
  Country: None (occurrence: None)
  Receive Date: 20110218
  Receipt Date: 20110210
  Transmission Date: 20110831
  Serious: Yes (Hospitalization, Other)
  Sender: FDA-Public Use
  Company Number: CA-NAPPMUNDI-CAN-2011-0001735

PATIENT
  Sex: Female

DRUGS (1)
  1. OXYCONTIN [Suspect]
     Indication: PRODUCT USED FOR UNKNOWN INDICATION

REACTIONS (7)
  - OVERDOSE [None]
  - DRUG DEPENDENCE [None]
  - HIP FRACTURE [None]
  - SUICIDE ATTEMPT [None]
  - LOWER LIMB FRACTURE [None]
  - SUICIDAL IDEATION [None]
  - DRUG ABUSE [None]
